FAERS Safety Report 14498474 (Version 1)
Quarter: 2018Q1

REPORT INFORMATION
  Report Type: Spontaneous
  Country: BR (occurrence: BR)
  Receive Date: 20180207
  Receipt Date: 20180207
  Transmission Date: 20180509
  Serious: Yes (Death, Hospitalization, Other)
  Sender: FDA-Public Use
  Company Number: BR-TEVA-2018-BR-853759

PATIENT
  Age: 66 Year
  Sex: Female
  Weight: 80 kg

DRUGS (12)
  1. RIVOTRIL [Concomitant]
     Active Substance: CLONAZEPAM
  2. FAULDLEUCO [Suspect]
     Active Substance: LEUCOVORIN CALCIUM
     Indication: PANCREATIC CARCINOMA
     Route: 042
     Dates: end: 20170628
  3. TEVAOXALI [Suspect]
     Active Substance: OXALIPLATIN
     Indication: PANCREATIC CARCINOMA
     Route: 042
     Dates: end: 20170628
  4. TECNOTECAN [Suspect]
     Active Substance: IRINOTECAN HYDROCHLORIDE
     Indication: PANCREATIC CARCINOMA
     Route: 042
     Dates: end: 20170628
  5. BENICAR ANLO [Concomitant]
     Active Substance: AMLODIPINE BESYLATE\OLMESARTAN MEDOXOMIL
     Indication: HYPERTENSION
  6. ROSUCOR [Concomitant]
     Active Substance: ROSUVASTATIN CALCIUM
     Indication: HYPERCHOLESTEROLAEMIA
  7. INSULIN [Concomitant]
     Active Substance: INSULIN NOS
     Indication: DIABETES MELLITUS
  8. XARELTO [Concomitant]
     Active Substance: RIVAROXABAN
  9. SYNTHROID [Concomitant]
     Active Substance: LEVOTHYROXINE SODIUM
     Indication: HYPOTHYROIDISM
  10. NATRILIX [Concomitant]
     Active Substance: INDAPAMIDE
     Indication: HYPERTENSION
  11. FAULDFLUOR [Suspect]
     Active Substance: FLUOROURACIL
     Indication: PANCREATIC CARCINOMA
     Route: 042
     Dates: end: 20170628
  12. ADDERA D3 [Concomitant]
     Active Substance: CHOLECALCIFEROL

REACTIONS (6)
  - Neutropenia [Recovered/Resolved]
  - Diarrhoea [Recovered/Resolved]
  - Dehydration [Recovered/Resolved]
  - Disease progression [Fatal]
  - Pyrexia [Recovered/Resolved]
  - Venous thrombosis limb [Recovered/Resolved]

NARRATIVE: CASE EVENT DATE: 2017
